FAERS Safety Report 8409657-1 (Version None)
Quarter: 2012Q2

REPORT INFORMATION
  Report Type: 
  Country: None (occurrence: None)
  Receive Date: 20120529
  Receipt Date: 20120523
  Transmission Date: 20120825
  Serious: Yes (Death, Hospitalization)
  Sender: FDA-Public Use
  Company Number: 2012PL000058

PATIENT
  Age: 67 Year
  Sex: Female

DRUGS (13)
  1. ACETYLSALIYLIC ACID [Concomitant]
  2. ALPRAZOLAM [Concomitant]
  3. OMEPRAZOLE [Concomitant]
  4. AMLODIPINE [Concomitant]
  5. LISINOPRIL [Concomitant]
  6. METFORMIN [Concomitant]
  7. GLIMEPIRIDE [Concomitant]
  8. NORCO [Concomitant]
  9. ZOLPIDEM [Concomitant]
  10. PROLEUKIN [Suspect]
     Indication: RENAL CANCER
     Dosage: 600000 IU/KG;Q8H;IV
     Route: 042
     Dates: start: 20120220, end: 20120223
  11. ATENOLOL [Concomitant]
  12. DOCUSATE SODIUM [Concomitant]
  13. SIMVASTATIN [Concomitant]

REACTIONS (19)
  - DIARRHOEA INFECTIOUS [None]
  - CAPILLARY LEAK SYNDROME [None]
  - NEOPLASM PROGRESSION [None]
  - METABOLIC ACIDOSIS [None]
  - NODAL RHYTHM [None]
  - INTESTINAL ISCHAEMIA [None]
  - ACUTE RESPIRATORY FAILURE [None]
  - PERIPHERAL ISCHAEMIA [None]
  - SHOCK [None]
  - DEHYDRATION [None]
  - UNRESPONSIVE TO STIMULI [None]
  - RENAL FAILURE ACUTE [None]
  - METASTATIC RENAL CELL CARCINOMA [None]
  - CARDIAC ARREST [None]
  - CLOSTRIDIAL INFECTION [None]
  - HYPONATRAEMIA [None]
  - OEDEMA [None]
  - THROMBOCYTOPENIA [None]
  - INFECTION [None]
